FAERS Safety Report 19741613 (Version 3)
Quarter: 2021Q3

REPORT INFORMATION
  Report Type: Report from Study
  Country: US (occurrence: US)
  Receive Date: 20210825
  Receipt Date: 20210921
  Transmission Date: 20211014
  Serious: No
  Sender: FDA-Public Use
  Company Number: NVSC2021US190043

PATIENT

DRUGS (1)
  1. KESIMPTA [Suspect]
     Active Substance: OFATUMUMAB
     Indication: RELAPSING-REMITTING MULTIPLE SCLEROSIS
     Dosage: UNK, QMO
     Route: 065

REACTIONS (3)
  - Fatigue [Unknown]
  - Back pain [Unknown]
  - Chills [Unknown]
